FAERS Safety Report 6572919-7 (Version None)
Quarter: 2010Q1

REPORT INFORMATION
  Report Type: 
  Country: None (occurrence: None)
  Receive Date: 20100208
  Receipt Date: 20100129
  Transmission Date: 20100710
  Serious: Yes (Other)
  Sender: FDA-Public Use
  Company Number: US-BIOGENIDEC-2009BI031876

PATIENT
  Age: 47 Year
  Sex: Female

DRUGS (8)
  1. TYSABRI [Suspect]
     Indication: MULTIPLE SCLEROSIS
     Route: 042
     Dates: start: 20080925
  2. ADDERALL 30 [Concomitant]
  3. OXYCODONE HCL [Concomitant]
  4. NEXIUM [Concomitant]
  5. LUNESTA [Concomitant]
  6. XANAX [Concomitant]
  7. NEURONTIN [Concomitant]
  8. CELEXA [Concomitant]

REACTIONS (7)
  - CENTRAL VENOUS CATHETERISATION [None]
  - CHILLS [None]
  - CYSTITIS [None]
  - KIDNEY INFECTION [None]
  - MUSCLE SPASMS [None]
  - NASAL CONGESTION [None]
  - THROMBOSIS IN DEVICE [None]
